FAERS Safety Report 5507801-7 (Version None)
Quarter: 2007Q4

REPORT INFORMATION
  Report Type: 
  Country: None (occurrence: None)
  Receive Date: 20071106
  Receipt Date: 20071026
  Transmission Date: 20080405
  Serious: Yes (Other)
  Sender: FDA-Public Use
  Company Number: JP-MERCK-0710USA06863

PATIENT
  Age: 2 Year
  Sex: Female
  Weight: 12 kg

DRUGS (5)
  1. PERIACTIN [Suspect]
     Indication: NASOPHARYNGITIS
     Route: 048
     Dates: start: 20071004, end: 20071009
  2. CLARITHROMYCIN [Concomitant]
     Indication: BRONCHITIS
     Route: 048
     Dates: start: 20071004, end: 20071009
  3. ASVERIN [Concomitant]
     Indication: NASOPHARYNGITIS
     Route: 048
     Dates: start: 20071004, end: 20071014
  4. MUCODYNE [Concomitant]
     Indication: NASOPHARYNGITIS
     Route: 048
     Dates: start: 20071004, end: 20071014
  5. TULOBUTEROL HYDROCHLORIDE [Concomitant]
     Route: 048
     Dates: start: 20071004, end: 20071010

REACTIONS (1)
  - BODY TEMPERATURE DECREASED [None]
